FAERS Safety Report 6699885-8 (Version None)
Quarter: 2010Q2

REPORT INFORMATION
  Report Type: 
  Country: None (occurrence: None)
  Receive Date: 20100427
  Receipt Date: 20100427
  Transmission Date: 20101027
  Serious: No
  Sender: FDA-Public Use
  Company Number: None

PATIENT
  Sex: Male
  Weight: 74.6 kg

DRUGS (2)
  1. GEMCITABINE HCL [Suspect]
     Dosage: 10080 MG
  2. TARCEVA [Suspect]
     Dosage: 3600 MG

REACTIONS (1)
  - HAEMATOTOXICITY [None]
